FAERS Safety Report 9612900 (Version 1)
Quarter: 2013Q4

REPORT INFORMATION
  Report Type: Spontaneous
  Country: US (occurrence: US)
  Receive Date: 20131010
  Receipt Date: 20131010
  Transmission Date: 20140711
  Serious: No
  Sender: FDA-Public Use
  Company Number: US-009507513-1310USA004242

PATIENT
  Sex: Female

DRUGS (2)
  1. CLARITIN [Suspect]
     Indication: RESPIRATORY TRACT CONGESTION
     Dosage: 20 MG, QD
     Route: 048
  2. CLARITIN [Suspect]
     Indication: DYSPHONIA

REACTIONS (1)
  - Overdose [Unknown]
